FAERS Safety Report 9276402 (Version 10)
Quarter: 2016Q1

REPORT INFORMATION
  Report Type: Spontaneous
  Country: US (occurrence: US)
  Receive Date: 20130507
  Receipt Date: 20160223
  Transmission Date: 20160526
  Serious: Yes (Life-Threatening, Hospitalization, Other)
  Sender: FDA-Public Use
  Company Number: US-GLAXOSMITHKLINE-A1022701A

PATIENT
  Age: 65 Year
  Sex: Female

DRUGS (7)
  1. FLOLAN [Suspect]
     Active Substance: EPOPROSTENOL SODIUM
     Dosage: 23 NG/KG/MIN CONTINUOUSLY
  2. FLOLAN [Suspect]
     Active Substance: EPOPROSTENOL SODIUM
     Indication: PULMONARY ARTERIAL HYPERTENSION
     Dosage: CONCENTRATION 45,000 NG/ML; 1.5 MG VIAL STRENGTHDOSE: 23 NG/KG/MIN CONTINUOUSLY
     Route: 042
     Dates: start: 20080609
  3. FLOLAN [Suspect]
     Active Substance: EPOPROSTENOL SODIUM
     Dosage: UNK
     Dates: start: 20080609
  4. FLOLAN [Suspect]
     Active Substance: EPOPROSTENOL SODIUM
     Dosage: UNK
     Dates: start: 20080609
  5. FLOLAN [Suspect]
     Active Substance: EPOPROSTENOL SODIUM
     Dosage: 23 UNK, CO
     Route: 042
     Dates: start: 20080609
  6. FLOLAN [Suspect]
     Active Substance: EPOPROSTENOL SODIUM
     Dosage: 19 UNK, CO
     Route: 042
     Dates: start: 20080609
  7. FLOLAN [Suspect]
     Active Substance: EPOPROSTENOL SODIUM
     Dosage: UNK
     Dates: start: 20080609

REACTIONS (15)
  - Malaise [Recovered/Resolved]
  - Cardiac disorder [Recovered/Resolved]
  - Hospitalisation [Recovered/Resolved]
  - Atrial fibrillation [Recovered/Resolved]
  - Weight increased [Recovered/Resolved]
  - Surgery [Unknown]
  - Oedema peripheral [Recovered/Resolved]
  - Renal disorder [Recovered/Resolved]
  - Urine output decreased [Recovered/Resolved]
  - Patella fracture [Unknown]
  - Heart rate increased [Recovered/Resolved]
  - Oedema [Recovered/Resolved]
  - Cardiac failure [Recovered/Resolved]
  - Sinusitis [Recovered/Resolved]
  - Alopecia [Not Recovered/Not Resolved]

NARRATIVE: CASE EVENT DATE: 2013
